FAERS Safety Report 8288248-X (Version None)
Quarter: 2012Q2

REPORT INFORMATION
  Report Type: 
  Country: None (occurrence: None)
  Receive Date: 20120416
  Receipt Date: 20120405
  Transmission Date: 20120825
  Serious: Yes (Other)
  Sender: FDA-Public Use
  Company Number: US-ASTRAZENECA-2011SE31126

PATIENT
  Age: 65 Year
  Sex: Male

DRUGS (10)
  1. CRESTOR [Suspect]
     Route: 048
  2. ATENOLOL [Concomitant]
  3. METFORMIN HCL [Concomitant]
  4. GEMFIBROZIL [Concomitant]
  5. NEXIUM [Suspect]
     Route: 048
  6. NEXIUM [Suspect]
     Route: 048
  7. GLIPIZIDE [Concomitant]
  8. LISINOPRIL [Concomitant]
  9. DIAZEPAM [Concomitant]
  10. HYDROCHLOROTHIAZIDE [Concomitant]

REACTIONS (4)
  - BARRETT'S OESOPHAGUS [None]
  - DRUG HYPERSENSITIVITY [None]
  - MYALGIA [None]
  - OFF LABEL USE [None]
